FAERS Safety Report 7279596-0 (Version None)
Quarter: 2011Q1

REPORT INFORMATION
  Report Type: 
  Country: None (occurrence: None)
  Receive Date: 20110203
  Receipt Date: 20110203
  Transmission Date: 20110831
  Serious: Yes (Death)
  Sender: FDA-Public Use
  Company Number: None

PATIENT
  Sex: Male

DRUGS (1)
  1. AMIODARONE HCL [Suspect]

REACTIONS (12)
  - LISTLESS [None]
  - MALAISE [None]
  - INSOMNIA [None]
  - VISION BLURRED [None]
  - STARING [None]
  - CHILLS [None]
  - FATIGUE [None]
  - OXYGEN SATURATION DECREASED [None]
  - PULMONARY FIBROSIS [None]
  - LETHARGY [None]
  - WHEEZING [None]
  - EYE DISORDER [None]
